FAERS Safety Report 7819618-9 (Version None)
Quarter: 2011Q4

REPORT INFORMATION
  Report Type: 
  Country: None (occurrence: None)
  Receive Date: 20111018
  Receipt Date: 20111018
  Transmission Date: 20120403
  Serious: Yes (Hospitalization)
  Sender: FDA-Public Use
  Company Number: None

PATIENT
  Sex: Male
  Weight: 57.6 kg

DRUGS (2)
  1. HYDRALAZINE HCL [Suspect]
     Indication: METASTATIC OCULAR MELANOMA
     Dosage: 25 MG
     Route: 048
     Dates: start: 20110907, end: 20111015
  2. VALPROIC ACID [Concomitant]
     Dosage: 500MG
     Route: 048

REACTIONS (8)
  - WEIGHT DECREASED [None]
  - FAECES DISCOLOURED [None]
  - VOMITING [None]
  - ANAEMIA [None]
  - DIARRHOEA [None]
  - THIRST [None]
  - DYSPNOEA EXERTIONAL [None]
  - DECREASED APPETITE [None]
